FAERS Safety Report 21328192 (Version 1)
Quarter: 2022Q3

REPORT INFORMATION
  Report Type: Spontaneous
  Country: FR (occurrence: FR)
  Receive Date: 20220913
  Receipt Date: 20220913
  Transmission Date: 20221027
  Serious: Yes (Other)
  Sender: FDA-Public Use
  Company Number: None

PATIENT
  Age: 67 Year
  Sex: Male
  Weight: 80 kg

DRUGS (9)
  1. AMLODIPINE [Suspect]
     Active Substance: AMLODIPINE BESYLATE
     Indication: Hypertension
     Dosage: 10 MG, QD
     Route: 048
     Dates: start: 20210510, end: 20210511
  2. FUROSEMIDE [Suspect]
     Active Substance: FUROSEMIDE
     Indication: Hypertension
     Dosage: 40 MG, QD
     Route: 042
     Dates: start: 20210426, end: 20210430
  3. PROPOFOL [Suspect]
     Active Substance: PROPOFOL
     Indication: Sedation
     Dosage: 200 MG, 1 DOSE HOURLY (DELAI 1ERE ADMINISTRATION : J16)
     Route: 042
     Dates: start: 20210414, end: 20210511
  4. URAPIDIL [Suspect]
     Active Substance: URAPIDIL
     Indication: Hypertension
     Dosage: 232 MG, 13 MG/HEURE (DELAI 1ERE ADMINISTRATION : J4
     Route: 042
     Dates: start: 20210426, end: 20210430
  5. PIPERACILLIN SODIUM\TAZOBACTAM SODIUM [Suspect]
     Active Substance: PIPERACILLIN SODIUM\TAZOBACTAM SODIUM
     Indication: Infection
     Dosage: 4 G, QD
     Route: 042
     Dates: start: 20210428, end: 20210429
  6. MIDAZOLAM [Suspect]
     Active Substance: MIDAZOLAM
     Indication: Sedation
     Dosage: 25 MG, 1 DOSE HOURLY (DELAI 1ERE ADMINISTRATION : J10)
     Route: 042
     Dates: start: 20210419, end: 20210509
  7. NICARDIPINE [Suspect]
     Active Substance: NICARDIPINE
     Indication: Hypertension
     Dosage: 50 MG, QD (2 MG/H DELAI 1ERE ADMINISTRATION : J11)
     Route: 042
     Dates: start: 20210418, end: 20210418
  8. SUFENTANIL [Suspect]
     Active Substance: SUFENTANIL
     Indication: Sedation
     Dosage: 10 UG/HEURE DELAI 1ERE ADMINISTRATION : J16
     Route: 042
     Dates: start: 20210414, end: 20210524
  9. LOVENOX [Suspect]
     Active Substance: ENOXAPARIN SODIUM
     Indication: Thrombosis prophylaxis
     Dosage: 0.8 ML 2 FOIS PAR JOUR
     Route: 058
     Dates: start: 20210414

REACTIONS (1)
  - Drug reaction with eosinophilia and systemic symptoms [Recovering/Resolving]

NARRATIVE: CASE EVENT DATE: 20210429
